FAERS Safety Report 6972426-3 (Version None)
Quarter: 2010Q3

REPORT INFORMATION
  Report Type: 
  Country: None (occurrence: None)
  Receive Date: 20100909
  Receipt Date: 20100828
  Transmission Date: 20110219
  Serious: No
  Sender: FDA-Public Use
  Company Number: US-B.I. PHARMACEUTICALS,INC./RIDGEFIELD-2010-BP-09847BP

PATIENT
  Sex: Female

DRUGS (3)
  1. ZANTAC [Suspect]
     Indication: GASTROOESOPHAGEAL REFLUX DISEASE
     Dosage: 300 MG
     Route: 048
     Dates: start: 20100827
  2. PAXIL CR [Concomitant]
     Indication: NERVOUS SYSTEM DISORDER
     Dosage: 12.5 MG
     Route: 048
     Dates: start: 20090801
  3. ONE A DAY WOMEN'S ACTIVE METABOLISM [Concomitant]
     Indication: SUPPLEMENTATION THERAPY
     Route: 048
     Dates: start: 20100101

REACTIONS (1)
  - DRUG INTERACTION [None]
